FAERS Safety Report 8268301-7 (Version None)
Quarter: 2012Q2

REPORT INFORMATION
  Report Type: 
  Country: None (occurrence: None)
  Receive Date: 20120409
  Receipt Date: 20120330
  Transmission Date: 20120825
  Serious: Yes (Life-Threatening, Hospitalization, Other)
  Sender: FDA-Public Use
  Company Number: GXKR2012DE001070

PATIENT

DRUGS (7)
  1. FUROSEMIDE [Suspect]
     Dosage: 40 MG, QID
     Route: 048
     Dates: start: 20050101, end: 20110131
  2. FUROSEMIDE [Interacting]
     Dosage: 40 MG, TID
     Route: 048
     Dates: start: 20110201, end: 20110221
  3. SPIRONOLACTONE [Interacting]
     Dosage: 12.5 MG, QD
     Route: 048
     Dates: start: 20101101, end: 20110131
  4. RAMIPRIL [Interacting]
     Dosage: 2.5 MG, BID
     Route: 048
     Dates: start: 20110228
  5. FUROSEMIDE [Interacting]
     Dosage: 40 MG, BID
     Route: 048
     Dates: start: 20110303
  6. SPIRONOLACTONE [Interacting]
     Dosage: 50 MG, BID
     Route: 048
     Dates: start: 20110217, end: 20110221
  7. RAMIPRIL [Interacting]
     Indication: HYPERTENSION
     Dosage: 5 MG, BID
     Route: 048
     Dates: start: 20110120, end: 20110131

REACTIONS (1)
  - RENAL FAILURE ACUTE [None]
